FAERS Safety Report 4783957-9 (Version None)
Quarter: 2005Q3

REPORT INFORMATION
  Report Type: 
  Country: None (occurrence: None)
  Receive Date: 20050927
  Receipt Date: 20050801
  Transmission Date: 20060218
  Serious: No
  Sender: FDA-Public Use
  Company Number: USA0508104281

PATIENT
  Age: 18 Year
  Sex: Male
  Weight: 91 kg

DRUGS (1)
  1. STRATTERA [Suspect]
     Indication: ATTENTION DEFICIT/HYPERACTIVITY DISORDER
     Dates: start: 20040101

REACTIONS (2)
  - NAUSEA [None]
  - SOMNOLENCE [None]
